FAERS Safety Report 8067406-3 (Version None)
Quarter: 2011Q4

REPORT INFORMATION
  Report Type: 
  Country: None (occurrence: None)
  Receive Date: 20111221
  Receipt Date: 20110329
  Transmission Date: 20120403
  Serious: Yes (Other)
  Sender: FDA-Public Use
  Company Number: PHHY2011US08524

PATIENT
  Age: 61 Year
  Sex: Female

DRUGS (10)
  1. COREG (CARVEDIOL) [Concomitant]
  2. IBUPROFEN [Concomitant]
  3. CIPRO [Concomitant]
  4. EXJADE [Suspect]
     Indication: ANAEMIA
     Dosage: 1375 MG, DAILY, ORAL
     Route: 048
     Dates: start: 20110113
  5. CARDURA [Concomitant]
  6. OMERPAZOLE (OMERPAZOLE) [Concomitant]
  7. ASPIRIN [Concomitant]
  8. VITAMIN B12 [Concomitant]
  9. CALCIUM [Concomitant]
  10. EXTRA STRENGTH TYLENOL [Concomitant]

REACTIONS (2)
  - FREQUENT BOWEL MOVEMENTS [None]
  - CATARACT [None]
